FAERS Safety Report 19250095 (Version 1)
Quarter: 2021Q2

REPORT INFORMATION
  Report Type: Spontaneous
  Country: CA (occurrence: CA)
  Receive Date: 20210513
  Receipt Date: 20210513
  Transmission Date: 20210717
  Serious: Yes (Hospitalization)
  Sender: FDA-Public Use
  Company Number: CA-ROCHE-2825809

PATIENT
  Age: 80 Year
  Sex: Male
  Weight: 93 kg

DRUGS (16)
  1. GAZYVA [Suspect]
     Active Substance: OBINUTUZUMAB
     Indication: CHRONIC LYMPHOCYTIC LEUKAEMIA
     Dosage: SINGLE DOSE VIAL
     Route: 042
  2. HYDROMORPHONE [Concomitant]
     Active Substance: HYDROMORPHONE
  3. PREGABALIN. [Concomitant]
     Active Substance: PREGABALIN
  4. TRIDURAL [Concomitant]
     Active Substance: TRAMADOL HYDROCHLORIDE
  5. METOPROLOL. [Concomitant]
     Active Substance: METOPROLOL
  6. ZOPICLONE [Concomitant]
     Active Substance: ZOPICLONE
  7. ACETAMINOPHEN. [Concomitant]
     Active Substance: ACETAMINOPHEN
  8. ASA [Concomitant]
     Active Substance: ASPIRIN
  9. DIPHENHYDRAMINE HYDROCHLORIDE. [Suspect]
     Active Substance: DIPHENHYDRAMINE HYDROCHLORIDE
     Indication: PROPHYLAXIS OF NAUSEA AND VOMITING
     Route: 041
  10. BRILINTA [Concomitant]
     Active Substance: TICAGRELOR
  11. CALCIUM [Concomitant]
     Active Substance: CALCIUM
  12. FAMOTIDINE. [Concomitant]
     Active Substance: FAMOTIDINE
  13. PERINDOPRIL [Concomitant]
     Active Substance: PERINDOPRIL
  14. DEXILANT [Concomitant]
     Active Substance: DEXLANSOPRAZOLE
  15. METFORMIN [Concomitant]
     Active Substance: METFORMIN HYDROCHLORIDE
  16. ROSUVASTATIN. [Concomitant]
     Active Substance: ROSUVASTATIN

REACTIONS (4)
  - Back pain [Recovered/Resolved]
  - Pyrexia [Recovered/Resolved]
  - Confusional state [Recovered/Resolved]
  - Infusion related reaction [Recovered/Resolved]
